FAERS Safety Report 13405401 (Version 1)
Quarter: 2017Q2

REPORT INFORMATION
  Report Type: Spontaneous
  Country: US (occurrence: US)
  Receive Date: 20170405
  Receipt Date: 20170405
  Transmission Date: 20170830
  Serious: No
  Sender: FDA-Public Use
  Company Number: US-G+W LABS-GW2017US000007

PATIENT

DRUGS (2)
  1. FLUOCINONIDE. [Suspect]
     Active Substance: FLUOCINONIDE
     Indication: PSORIASIS
  2. FLUOCINONIDE. [Suspect]
     Active Substance: FLUOCINONIDE
     Indication: PSORIASIS
     Dosage: 0.05 %, UNK

REACTIONS (2)
  - Off label use [Unknown]
  - Drug ineffective for unapproved indication [Unknown]
